FAERS Safety Report 20726539 (Version 1)
Quarter: 2022Q2

REPORT INFORMATION
  Report Type: Report from Study
  Country: US (occurrence: US)
  Receive Date: 20220419
  Receipt Date: 20220419
  Transmission Date: 20220720
  Serious: Yes (Other)
  Sender: FDA-Public Use
  Company Number: US-JAZZ-2021-US-026094

PATIENT
  Age: 43 Year
  Sex: Female

DRUGS (9)
  1. XYREM [Suspect]
     Active Substance: SODIUM OXYBATE
     Indication: Sleep disorder
     Dosage: UNKNOWN DOSE AND FREQUENCY
     Route: 048
  2. DIAZEPAM [Suspect]
     Active Substance: DIAZEPAM
     Indication: Product used for unknown indication
  3. ADDERALL [Concomitant]
     Active Substance: AMPHETAMINE ASPARTATE\AMPHETAMINE SULFATE\DEXTROAMPHETAMINE SACCHARATE\DEXTROAMPHETAMINE SULFATE
     Dosage: 0000
     Dates: start: 20200715
  4. HYDROCODONE [Concomitant]
     Active Substance: HYDROCODONE
  5. AZELASTINE [Concomitant]
     Active Substance: AZELASTINE
  6. CARISOPRODOL [Concomitant]
     Active Substance: CARISOPRODOL
  7. GEODON [Concomitant]
     Active Substance: ZIPRASIDONE HYDROCHLORIDE\ZIPRASIDONE MESYLATE
  8. LAMICTAL XR [Concomitant]
     Active Substance: LAMOTRIGINE
  9. MUCINEX EXPECTORANT [AMBROXOL HYDROCHLORIDE;GUAIFENESIN] [Concomitant]

REACTIONS (10)
  - Drug dependence [Unknown]
  - Oropharyngeal discomfort [Unknown]
  - Nasopharyngitis [Unknown]
  - Injury [Unknown]
  - Drug withdrawal syndrome [Unknown]
  - Mania [Unknown]
  - Rash [Not Recovered/Not Resolved]
  - Depression [Recovering/Resolving]
  - Nausea [Not Recovered/Not Resolved]
  - Vomiting [Not Recovered/Not Resolved]

NARRATIVE: CASE EVENT DATE: 20191101
